FAERS Safety Report 7803255-6 (Version None)
Quarter: 2011Q4

REPORT INFORMATION
  Report Type: 
  Country: None (occurrence: None)
  Receive Date: 20111007
  Receipt Date: 20110926
  Transmission Date: 20120403
  Serious: No
  Sender: FDA-Public Use
  Company Number: CA-MUTUAL PHARMACEUTICAL COMPANY, INC.-SFTM20110013

PATIENT
  Age: 3 Year
  Sex: Male

DRUGS (3)
  1. GANCICLOVIR [Concomitant]
     Indication: CYTOMEGALOVIRUS INFECTION
     Route: 065
  2. PENICILLIN V [Concomitant]
     Indication: INFECTION PROPHYLAXIS
     Route: 065
  3. TRIMETHOPRIM + SULFAMETHOXAZOLE [Suspect]
     Indication: INFECTION PROPHYLAXIS
     Route: 065

REACTIONS (1)
  - LINEAR IGA DISEASE [None]
